FAERS Safety Report 16982740 (Version 1)
Quarter: 2019Q4

REPORT INFORMATION
  Report Type: Spontaneous
  Country: FR (occurrence: FR)
  Receive Date: 20191101
  Receipt Date: 20191101
  Transmission Date: 20200122
  Serious: Yes (Life-Threatening)
  Sender: FDA-Public Use
  Company Number: FR-ELI_LILLY_AND_COMPANY-FR201910014597

PATIENT
  Age: 86 Year
  Sex: Female
  Weight: 65.5 kg

DRUGS (4)
  1. ZOPICLONE [Suspect]
     Active Substance: ZOPICLONE
     Indication: TOXICITY TO VARIOUS AGENTS
     Dosage: 210 MG, UNKNOWN
     Route: 048
     Dates: start: 20191021, end: 20191021
  2. OLANZAPINE. [Suspect]
     Active Substance: OLANZAPINE
     Indication: TOXICITY TO VARIOUS AGENTS
     Dosage: 172.5 MG, UNKNOWN
     Route: 048
     Dates: start: 20191021, end: 20191021
  3. LAROXYL [Suspect]
     Active Substance: AMITRIPTYLINE HYDROCHLORIDE
     Indication: TOXICITY TO VARIOUS AGENTS
     Dosage: UNK, UNKNOWN
     Route: 048
     Dates: start: 20191021, end: 20191021
  4. LAMALINE [ATROPA BELLADONNA EXTRACT;CAFFEINE;PAPAVER SOMNIFERUM TINCTU [Suspect]
     Active Substance: ACETAMINOPHEN\BELLADONNA LEAF\CAFFEINE\OPIUM
     Indication: TOXICITY TO VARIOUS AGENTS
     Dosage: 15 DOSAGE FORM, UNKNOWN
     Route: 048
     Dates: start: 20191021

REACTIONS (3)
  - Coma [Recovered/Resolved]
  - Pneumonia aspiration [Recovered/Resolved]
  - Anterograde amnesia [Recovered/Resolved]

NARRATIVE: CASE EVENT DATE: 20191021
